FAERS Safety Report 15239983 (Version 1)
Quarter: 2018Q3

REPORT INFORMATION
  Report Type: Report from Study
  Country: ES (occurrence: ES)
  Receive Date: 20180803
  Receipt Date: 20180803
  Transmission Date: 20181010
  Serious: Yes (Hospitalization)
  Sender: FDA-Public Use
  Company Number: ES-TEVA-2018-ES-934359

PATIENT
  Age: 80 Year
  Sex: Male

DRUGS (2)
  1. AMOXICILINA (108A) [Suspect]
     Active Substance: AMOXICILLIN
     Dosage: 1GR CADA 8 HORAS
     Route: 048
     Dates: start: 20171112, end: 20171121
  2. FUROSEMIDA (1615A) [Concomitant]
     Active Substance: FUROSEMIDE
     Route: 048
     Dates: start: 20171121, end: 20171121

REACTIONS (2)
  - Hypokalaemia [Recovered/Resolved]
  - Diarrhoea [Recovered/Resolved]

NARRATIVE: CASE EVENT DATE: 201711
